FAERS Safety Report 7622354-5 (Version None)
Quarter: 2011Q3

REPORT INFORMATION
  Report Type: 
  Country: None (occurrence: None)
  Receive Date: 20110715
  Receipt Date: 20110715
  Transmission Date: 20111222
  Serious: No
  Sender: FDA-Public Use
  Company Number: None

PATIENT
  Age: 58 Year
  Sex: Female
  Weight: 68.4932 kg

DRUGS (1)
  1. XIFAXAN [Suspect]
     Dosage: 550 MG TID BY MOUTH
     Route: 048
     Dates: start: 20110707, end: 20110710

REACTIONS (2)
  - PURPURA [None]
  - PETECHIAE [None]
